FAERS Safety Report 10252827 (Version 1)
Quarter: 2014Q2

REPORT INFORMATION
  Report Type: Spontaneous
  Country: US (occurrence: US)
  Receive Date: 20140623
  Receipt Date: 20140623
  Transmission Date: 20141212
  Serious: No
  Sender: FDA-Public Use
  Company Number: US-PFIZER INC-2014167868

PATIENT
  Sex: Male

DRUGS (9)
  1. TOVIAZ [Suspect]
     Dosage: 8 MG, 1X/DAY
     Route: 048
  2. CADUET [Suspect]
     Dosage: UNK
  3. LASIX [Suspect]
     Dosage: UNK
  4. COREG [Suspect]
     Dosage: UNK
  5. NIASPAN [Suspect]
     Dosage: UNK
  6. WARFARIN [Suspect]
     Dosage: UNK
  7. DIOVAN (VALSARTAN) [Suspect]
     Dosage: UNK
  8. DEXILANT [Suspect]
     Dosage: UNK
  9. CARAFATE [Concomitant]
     Dosage: UNK

REACTIONS (1)
  - Drug hypersensitivity [Unknown]
